FAERS Safety Report 18436697 (Version 2)
Quarter: 2020Q4

REPORT INFORMATION
  Report Type: Spontaneous
  Country: US (occurrence: US)
  Receive Date: 20201028
  Receipt Date: 20201102
  Transmission Date: 20210114
  Serious: Yes (Other)
  Sender: FDA-Public Use
  Company Number: US-PFIZER INC-2020417356

PATIENT
  Age: 43 Year
  Sex: Female
  Weight: 95.24 kg

DRUGS (4)
  1. IBRANCE [Suspect]
     Active Substance: PALBOCICLIB
     Indication: BREAST CANCER FEMALE
     Dosage: 100 MG, CYCLIC (DAILY 21 DAYS)
     Route: 048
     Dates: start: 202009
  2. LETROZOLE. [Concomitant]
     Active Substance: LETROZOLE
     Dosage: UNK (100 % POWDER)
  3. PROLIA [Concomitant]
     Active Substance: DENOSUMAB
     Dosage: 60 MG/ML (60 MG/ML SYRINGE)
  4. LUPRON DEPOT [Concomitant]
     Active Substance: LEUPROLIDE ACETATE
     Dosage: 22.5 MG (22.5 MG SYRINGEKIT)

REACTIONS (3)
  - Back pain [Unknown]
  - Arthralgia [Unknown]
  - Tumour pain [Unknown]
